FAERS Safety Report 9814548 (Version 1)
Quarter: 2014Q1

REPORT INFORMATION
  Report Type: Spontaneous
  Country: US (occurrence: US)
  Receive Date: 20140113
  Receipt Date: 20140113
  Transmission Date: 20141002
  Serious: No
  Sender: FDA-Public Use
  Company Number: US-BIOGENIDEC-2014BI000286

PATIENT
  Sex: Female

DRUGS (12)
  1. TECFIDERA [Suspect]
     Indication: MULTIPLE SCLEROSIS
     Route: 048
  2. VITAMIN D [Concomitant]
  3. ATORVASTATIN [Concomitant]
  4. CARVEDILOL [Concomitant]
  5. CITALOPRAM HBR [Concomitant]
  6. LIDOCAINE [Concomitant]
  7. LISINOPRIL [Concomitant]
  8. LORAZEPAM [Concomitant]
  9. NIFEDICAL XL [Concomitant]
  10. TIZANIDINE HCL [Concomitant]
  11. TRAMADOL HCL [Concomitant]
  12. ZOMIG [Concomitant]

REACTIONS (3)
  - Depressed mood [Unknown]
  - Rash [Unknown]
  - Flushing [Unknown]
